FAERS Safety Report 15284903 (Version 1)
Quarter: 2018Q3

REPORT INFORMATION
  Report Type: Spontaneous
  Country: FR (occurrence: FR)
  Receive Date: 20180816
  Receipt Date: 20180816
  Transmission Date: 20181010
  Serious: Yes (Hospitalization)
  Sender: FDA-Public Use
  Company Number: FR-SA-2018SA185517

PATIENT
  Age: 84 Year
  Sex: Female

DRUGS (11)
  1. LERCAN [Concomitant]
     Active Substance: LERCANIDIPINE
     Dosage: 1 DF, QD
     Route: 048
  2. MOVICOL [Concomitant]
     Active Substance: POLYETHYLENE GLYCOL 3350\POTASSIUM CHLORIDE\SODIUM BICARBONATE\SODIUM CHLORIDE
     Dosage: 2 DF, QD
     Route: 048
  3. SPECIAFOLDINE [Concomitant]
     Active Substance: FOLIC ACID
     Dosage: 1 DF, QD
     Route: 048
  4. PLAVIX [Suspect]
     Active Substance: CLOPIDOGREL BISULFATE
     Dosage: 1 DF, QD
     Route: 048
     Dates: end: 20180604
  5. OXYCONTIN [Concomitant]
     Active Substance: OXYCODONE HYDROCHLORIDE
     Dosage: 2 DF, QD
     Route: 048
  6. OXYNORM [Concomitant]
     Active Substance: OXYCODONE HYDROCHLORIDE
     Dosage: IF PAIN
     Route: 048
  7. PRAVASTATINE SANDOZ [Concomitant]
     Active Substance: PRAVASTATIN SODIUM
     Dosage: 1 DF, QD
     Route: 048
  8. ZOPICLONE [Concomitant]
     Active Substance: ZOPICLONE
     Dosage: 7.5 MG, QD
     Route: 048
  9. LEVOTHYROX [Concomitant]
     Active Substance: LEVOTHYROXINE
     Dosage: 1 DF, QD
     Route: 048
  10. PANTOPRAZOLE [Concomitant]
     Active Substance: PANTOPRAZOLE
     Dosage: 80 MG, QD
     Route: 048
  11. VALSARTAN. [Concomitant]
     Active Substance: VALSARTAN
     Dosage: 1 DF, QD
     Route: 048

REACTIONS (3)
  - Gastrointestinal haemorrhage [Not Recovered/Not Resolved]
  - Anaemia [Not Recovered/Not Resolved]
  - Haematemesis [Not Recovered/Not Resolved]

NARRATIVE: CASE EVENT DATE: 20180604
